FAERS Safety Report 9112355 (Version 1)
Quarter: 2013Q1

REPORT INFORMATION
  Report Type: Spontaneous
  Country: US (occurrence: US)
  Receive Date: 20130219
  Receipt Date: 20130219
  Transmission Date: 20140127
  Serious: No
  Sender: FDA-Public Use
  Company Number: US-BRISTOL-MYERS SQUIBB COMPANY-16706285

PATIENT
  Age: 49 Year
  Sex: Female
  Weight: 73.92 kg

DRUGS (2)
  1. ABATACEPT SUBQ INJECTION 125MG/ML [Suspect]
     Indication: RHEUMATOID ARTHRITIS
     Dosage: LAST INJECTION WAS ON 16JUN2012?IV ORENCIA ON 2YEARS
     Route: 058
  2. PLAQUENIL [Concomitant]

REACTIONS (2)
  - Granuloma annulare [Unknown]
  - Blood cholesterol abnormal [Unknown]
